FAERS Safety Report 6181738-5 (Version None)
Quarter: 2009Q2

REPORT INFORMATION
  Report Type: 
  Country: None (occurrence: None)
  Receive Date: 20090506
  Receipt Date: 20090501
  Transmission Date: 20091009
  Serious: Yes (Hospitalization, Other)
  Sender: FDA-Public Use
  Company Number: US-ABBOTT-09P-163-0571143-00

PATIENT
  Sex: Male
  Weight: 103.06 kg

DRUGS (12)
  1. HUMIRA [Suspect]
     Indication: DRUG USE FOR UNKNOWN INDICATION
     Dates: end: 20090414
  2. HUMIRA [Suspect]
     Indication: RHEUMATOID ARTHRITIS
     Route: 058
     Dates: start: 20040101
  3. METHOTREXATE [Concomitant]
     Indication: RHEUMATOID ARTHRITIS
     Dosage: 7 X 2.5MG TABS Q WEEK
     Route: 048
  4. LEUCOVORIN CALCIUM [Concomitant]
     Indication: SUPPLEMENTATION THERAPY
     Dosage: 5 MG Q TUESDAY
     Route: 048
  5. HYDROXYCHLOROQUINE SULFATE [Concomitant]
     Indication: RHEUMATOID ARTHRITIS
     Route: 048
  6. MELOXICAM [Concomitant]
     Indication: RHEUMATOID ARTHRITIS
     Route: 048
  7. ULTRAM [Concomitant]
     Indication: PAIN
  8. CLONAZEPAM [Concomitant]
     Indication: PANIC ATTACK
     Route: 048
  9. BUSPAR [Concomitant]
     Indication: PANIC ATTACK
     Route: 048
  10. PROVIDIAL [Concomitant]
     Indication: HYPERTENSION
     Route: 048
  11. ASPIRIN [Concomitant]
     Indication: DRUG USE FOR UNKNOWN INDICATION
     Route: 048
  12. PRAVASTATIN [Concomitant]
     Indication: BLOOD CHOLESTEROL INCREASED
     Route: 048

REACTIONS (9)
  - ARTHRALGIA [None]
  - CLAUSTROPHOBIA [None]
  - GAIT DISTURBANCE [None]
  - INCISIONAL DRAINAGE [None]
  - NUCLEAR MAGNETIC RESONANCE IMAGING ABNORMAL [None]
  - PANIC ATTACK [None]
  - RADICULOPATHY [None]
  - SPINAL DISORDER [None]
  - SUFFOCATION FEELING [None]
